FAERS Safety Report 7007058-4 (Version None)
Quarter: 2010Q3

REPORT INFORMATION
  Report Type: 
  Country: None (occurrence: None)
  Receive Date: 20100922
  Receipt Date: 20100917
  Transmission Date: 20110219
  Serious: Yes (Death)
  Sender: FDA-Public Use
  Company Number: PHHY2010GB04301

PATIENT
  Sex: Male

DRUGS (3)
  1. CLOZARIL [Suspect]
     Indication: SCHIZOPHRENIA
     Dosage: UNK
     Dates: start: 20090922
  2. ZOPICLONE [Suspect]
     Dosage: UNK
  3. LORAZEPAM [Concomitant]

REACTIONS (2)
  - ASPIRATION [None]
  - RESPIRATORY DEPRESSION [None]
